FAERS Safety Report 19372878 (Version 2)
Quarter: 2021Q2

REPORT INFORMATION
  Report Type: Spontaneous
  Country: US (occurrence: US)
  Receive Date: 20210603
  Receipt Date: 20210610
  Transmission Date: 20210717
  Serious: No
  Sender: FDA-Public Use
  Company Number: US-PFIZER INC-2021264108

PATIENT
  Age: 55 Year
  Sex: Female
  Weight: 63.96 kg

DRUGS (4)
  1. PREMARIN [Suspect]
     Active Substance: ESTROGENS, CONJUGATED
     Indication: OESTROGEN DEFICIENCY
     Dosage: 0.5 G [EVERY 4 DAYS]
     Route: 067
  2. PREMARIN [Suspect]
     Active Substance: ESTROGENS, CONJUGATED
     Indication: HAEMORRHAGE
  3. PREMARIN [Suspect]
     Active Substance: ESTROGENS, CONJUGATED
     Indication: DYSPAREUNIA
     Dosage: UNK, 2X/WEEK [ONE TIME TWICE A WEEK]
  4. PREMARIN [Suspect]
     Active Substance: ESTROGENS, CONJUGATED
     Indication: ENDOMETRITIS

REACTIONS (3)
  - Incorrect dose administered by device [Unknown]
  - Vulvovaginal pain [Unknown]
  - Off label use [Unknown]
